FAERS Safety Report 7508437-9 (Version None)
Quarter: 2011Q2

REPORT INFORMATION
  Report Type: 
  Country: None (occurrence: None)
  Receive Date: 20110527
  Receipt Date: 20110523
  Transmission Date: 20111010
  Serious: No
  Sender: FDA-Public Use
  Company Number: US-PFIZER INC-2011110405

PATIENT
  Sex: Male
  Weight: 86.168 kg

DRUGS (3)
  1. CRESTOR [Concomitant]
     Dosage: 5 MG, UNK
     Route: 048
  2. SUTENT [Suspect]
     Dosage: 50 MG, 1X/DAY, 4 WEEKS ON/2 WEEKS OFF
     Route: 048
  3. LISINOPRIL [Concomitant]
     Dosage: 5 MG, UNK
     Route: 048

REACTIONS (6)
  - ORAL PAIN [None]
  - SWOLLEN TONGUE [None]
  - HYPOGEUSIA [None]
  - HYPERKERATOSIS [None]
  - PAIN [None]
  - RASH [None]
